FAERS Safety Report 6363565-9 (Version None)
Quarter: 2009Q3

REPORT INFORMATION
  Report Type: 
  Country: None (occurrence: None)
  Receive Date: 20090919
  Receipt Date: 20090701
  Transmission Date: 20100115
  Serious: No
  Sender: FDA-Public Use
  Company Number: US-ABBOTT-09P-163-0583189-00

PATIENT
  Sex: Female
  Weight: 103.51 kg

DRUGS (4)
  1. HUMIRA [Suspect]
     Indication: RHEUMATOID ARTHRITIS
     Dates: start: 20090630
  2. HUMIRA [Suspect]
     Indication: ANKYLOSING SPONDYLITIS
  3. SLIDING SCALE INSULIN (REGULAR) [Concomitant]
     Indication: DIABETES MELLITUS
  4. HUMULIN 70/30 [Concomitant]
     Indication: DIABETES MELLITUS
     Dosage: 50 UNITS IN AM AND 20 UNITS IN PM
     Dates: start: 19940101

REACTIONS (3)
  - BLOOD GLUCOSE INCREASED [None]
  - MUSCLE SPASMS [None]
  - OROPHARYNGEAL PAIN [None]
